FAERS Safety Report 13479329 (Version 2)
Quarter: 2017Q3

REPORT INFORMATION
  Report Type: Report from Study
  Country: US (occurrence: US)
  Receive Date: 20170424
  Receipt Date: 20170728
  Transmission Date: 20171127
  Serious: No
  Sender: FDA-Public Use
  Company Number: US-AMGEN-USASL2017028055

PATIENT
  Age: 68 Year
  Sex: Female

DRUGS (1)
  1. REPATHA [Suspect]
     Active Substance: EVOLOCUMAB
     Indication: HYPERCHOLESTEROLAEMIA
     Dosage: 140 MG, Q2WK
     Route: 065

REACTIONS (11)
  - High density lipoprotein decreased [Unknown]
  - Crying [Recovered/Resolved]
  - Oropharyngeal pain [Recovered/Resolved]
  - Diarrhoea [Recovered/Resolved]
  - Sinusitis [Unknown]
  - Palpitations [Unknown]
  - Headache [Recovered/Resolved]
  - Vision blurred [Unknown]
  - Dry mouth [Recovered/Resolved]
  - Sinus disorder [Recovered/Resolved]
  - Rhinorrhoea [Unknown]
